FAERS Safety Report 11552566 (Version 1)
Quarter: 2015Q3

REPORT INFORMATION
  Report Type: Report from Study
  Country: US (occurrence: US)
  Receive Date: 20150925
  Receipt Date: 20150925
  Transmission Date: 20151125
  Serious: Yes (Hospitalization)
  Sender: FDA-Public Use
  Company Number: US-ABBVIE-15K-163-1465149-00

PATIENT
  Age: 15 Year
  Sex: Male

DRUGS (3)
  1. METHOTREXATE [Concomitant]
     Active Substance: METHOTREXATE
     Indication: CROHN^S DISEASE
  2. HUMIRA [Suspect]
     Active Substance: ADALIMUMAB
     Indication: CROHN^S DISEASE
     Route: 058
  3. HUMIRA [Suspect]
     Active Substance: ADALIMUMAB
     Route: 058

REACTIONS (10)
  - C-reactive protein increased [Unknown]
  - Oesophageal perforation [Unknown]
  - Abdominal pain upper [Unknown]
  - Red blood cell sedimentation rate increased [Unknown]
  - Drug ineffective [Recovering/Resolving]
  - Abdominal adhesions [Unknown]
  - Ileal stenosis [Unknown]
  - Enteritis infectious [Unknown]
  - Gastrointestinal wall thickening [Unknown]
  - Duodenal perforation [Unknown]

NARRATIVE: CASE EVENT DATE: 2015
